FAERS Safety Report 5289343-X (Version None)
Quarter: 2007Q2

REPORT INFORMATION
  Report Type: 
  Country: None (occurrence: None)
  Receive Date: 20070404
  Receipt Date: 20070404
  Transmission Date: 20071010
  Serious: Yes (Hospitalization)
  Sender: FDA-Public Use
  Company Number: None

PATIENT
  Age: 51 Year
  Sex: Female
  Weight: 55.7924 kg

DRUGS (1)
  1. FLOXIN [Suspect]
     Indication: EAR INFECTION
     Dosage: 10 DROPS   2X DAILY  OTIC
     Route: 001
     Dates: start: 20070123, end: 20070126

REACTIONS (35)
  - ABASIA [None]
  - ABSCESS [None]
  - ADVERSE DRUG REACTION [None]
  - ANOREXIA [None]
  - ANXIETY [None]
  - ARTHRALGIA [None]
  - ARTHRITIS [None]
  - ASTHENIA [None]
  - BURNING SENSATION [None]
  - BURSA DISORDER [None]
  - CONFUSIONAL STATE [None]
  - DEPRESSION [None]
  - DISORIENTATION [None]
  - DIZZINESS [None]
  - DYSGEUSIA [None]
  - HYPOAESTHESIA [None]
  - INFLAMMATION [None]
  - INSOMNIA [None]
  - MUSCLE TWITCHING [None]
  - MUSCULOSKELETAL STIFFNESS [None]
  - MYALGIA [None]
  - NAUSEA [None]
  - PALPITATIONS [None]
  - PANIC ATTACK [None]
  - PARAESTHESIA [None]
  - PAROSMIA [None]
  - PERIPHERAL COLDNESS [None]
  - PRURITUS [None]
  - RASH MACULAR [None]
  - SCIATICA [None]
  - SPEECH DISORDER [None]
  - SWELLING FACE [None]
  - THIRST [None]
  - TREMOR [None]
  - VITREOUS FLOATERS [None]
